FAERS Safety Report 21139383 (Version 1)
Quarter: 2022Q3

REPORT INFORMATION
  Report Type: Report from Study
  Country: GB (occurrence: GB)
  Receive Date: 20220727
  Receipt Date: 20220727
  Transmission Date: 20221026
  Serious: Yes (Hospitalization, Other)
  Sender: FDA-Public Use
  Company Number: GB-BRISTOL-MYERS SQUIBB COMPANY-2022-077454

PATIENT
  Age: 72 Year
  Sex: Male
  Weight: 62.3 kg

DRUGS (2)
  1. PACLITAXEL [Suspect]
     Active Substance: PACLITAXEL
     Indication: Pancreatic carcinoma metastatic
     Dosage: CYCLE NUMBER PRIOR TO SAAE WAS 13
     Route: 042
     Dates: start: 20210804, end: 20220511
  2. GEMCITABINE [Suspect]
     Active Substance: GEMCITABINE
     Indication: Pancreatic carcinoma metastatic
     Dosage: CYCLE NUMBER PRIOR TO SAAE WAS 13
     Route: 042
     Dates: start: 20210804, end: 20220713

REACTIONS (1)
  - Papilloedema [Recovered/Resolved with Sequelae]

NARRATIVE: CASE EVENT DATE: 20220713
